FAERS Safety Report 19921013 (Version 1)
Quarter: 2021Q4

REPORT INFORMATION
  Report Type: Spontaneous
  Country: US (occurrence: US)
  Receive Date: 20211005
  Receipt Date: 20211005
  Transmission Date: 20220304
  Serious: No
  Sender: FDA-Public Use
  Company Number: US-ADAMAS PHARMA, LLC-2021ADA01730

PATIENT
  Age: 77 Year
  Sex: Female

DRUGS (4)
  1. GOCOVRI [Suspect]
     Active Substance: AMANTADINE
     Indication: Dyskinesia
     Dosage: 274 MG, 1X/DAY AT BEDTIME
     Route: 048
     Dates: start: 20210121
  2. TRAMADOL [Concomitant]
     Active Substance: TRAMADOL
  3. TYLENOL [Concomitant]
     Active Substance: ACETAMINOPHEN
  4. LEVODOPA [Concomitant]
     Active Substance: LEVODOPA

REACTIONS (2)
  - Hallucination [Unknown]
  - Insomnia [Unknown]

NARRATIVE: CASE EVENT DATE: 20210715
